FAERS Safety Report 13242460 (Version 1)
Quarter: 2017Q1

REPORT INFORMATION
  Report Type: Spontaneous
  Country: US (occurrence: US)
  Receive Date: 20170216
  Receipt Date: 20170216
  Transmission Date: 20170428
  Serious: No
  Sender: FDA-Public Use
  Company Number: None

PATIENT
  Age: 59 Year
  Sex: Female

DRUGS (1)
  1. REMICADE [Suspect]
     Active Substance: INFLIXIMAB
     Indication: SOFT TISSUE SARCOMA
     Dosage: 300MG EVERY 8 WEEKS IV
     Route: 042
     Dates: start: 20161214, end: 20170201

REACTIONS (2)
  - Eye abscess [None]
  - Eye infection [None]

NARRATIVE: CASE EVENT DATE: 20170115
